FAERS Safety Report 8599386-6 (Version None)
Quarter: 2012Q3

REPORT INFORMATION
  Report Type: 
  Country: None (occurrence: None)
  Receive Date: 20120816
  Receipt Date: 20120813
  Transmission Date: 20120928
  Serious: Yes (Other)
  Sender: FDA-Public Use
  Company Number: PHHY2012AU062020

PATIENT
  Sex: Female

DRUGS (6)
  1. GILENYA [Suspect]
     Indication: MULTIPLE SCLEROSIS
     Dosage: 0.5 MG, QD
     Route: 048
     Dates: start: 20111205
  2. CYMBALTA [Concomitant]
  3. AMITRIPTYLINE HCL [Concomitant]
  4. RELOVA [Concomitant]
     Indication: OESTROGEN THERAPY
  5. PROGYNOVA [Concomitant]
     Indication: OESTROGEN THERAPY
  6. ANDROCUR [Concomitant]
     Indication: OESTROGEN THERAPY

REACTIONS (2)
  - WEIGHT INCREASED [None]
  - INCREASED APPETITE [None]
